FAERS Safety Report 5121126-3 (Version None)
Quarter: 2006Q4

REPORT INFORMATION
  Report Type: 
  Country: None (occurrence: None)
  Receive Date: 20061002
  Receipt Date: 20060922
  Transmission Date: 20070319
  Serious: Yes (Disabling)
  Sender: FDA-Public Use
  Company Number: 2006113564

PATIENT
  Age: 28 Year
  Sex: Female

DRUGS (3)
  1. LIPITOR [Suspect]
     Indication: TYPE IIA HYPERLIPIDAEMIA
     Dosage: 20 MG (20 MG, 1 IN 1 D), ORAL
     Route: 048
     Dates: start: 19980101, end: 20060201
  2. SIMVASTATIN [Suspect]
     Indication: TYPE IIA HYPERLIPIDAEMIA
     Dosage: 20 MG (20 MG, 1 IN 1 D), ORAL
     Route: 048
     Dates: start: 20060201, end: 20060601
  3. IMOVANE          (ZOPICLONE) [Concomitant]

REACTIONS (9)
  - CHRONIC FATIGUE SYNDROME [None]
  - CYTOMEGALOVIRUS INFECTION [None]
  - ENCEPHALITIS [None]
  - EPSTEIN-BARR VIRUS INFECTION [None]
  - INFECTION [None]
  - MYALGIA [None]
  - NO THERAPEUTIC RESPONSE [None]
  - PHARYNGITIS [None]
  - POST VIRAL FATIGUE SYNDROME [None]
